FAERS Safety Report 6537658-7 (Version None)
Quarter: 2010Q1

REPORT INFORMATION
  Report Type: 
  Country: None (occurrence: None)
  Receive Date: 20100114
  Receipt Date: 20100112
  Transmission Date: 20100710
  Serious: Yes (Hospitalization)
  Sender: FDA-Public Use
  Company Number: B0623625A

PATIENT
  Sex: Female
  Weight: 71 kg

DRUGS (2)
  1. LAPATINIB [Suspect]
     Dosage: 1250MG PER DAY
     Route: 048
     Dates: start: 20091203
  2. PACLITAXEL [Suspect]
     Dosage: 80MGM2 WEEKLY
     Route: 042
     Dates: start: 20091203

REACTIONS (4)
  - DEHYDRATION [None]
  - DIARRHOEA [None]
  - NAUSEA [None]
  - VOMITING [None]
